FAERS Safety Report 14402819 (Version 1)
Quarter: 2018Q1

REPORT INFORMATION
  Report Type: Spontaneous
  Country: FR (occurrence: FR)
  Receive Date: 20180117
  Receipt Date: 20180117
  Transmission Date: 20180509
  Serious: Yes (Death, Other)
  Sender: FDA-Public Use
  Company Number: FR-PFIZER INC-2018021098

PATIENT
  Age: 49 Year
  Sex: Male
  Weight: 63 kg

DRUGS (1)
  1. XALKORI [Suspect]
     Active Substance: CRIZOTINIB
     Indication: LUNG ADENOCARCINOMA
     Dosage: 2 DF, 1X/DAY
     Route: 048
     Dates: start: 20171005, end: 20171012

REACTIONS (2)
  - Cardio-respiratory arrest [Fatal]
  - Coma [Fatal]

NARRATIVE: CASE EVENT DATE: 20171012
